FAERS Safety Report 4471034-6 (Version None)
Quarter: 2004Q4

REPORT INFORMATION
  Report Type: 
  Country: None (occurrence: None)
  Receive Date: 20041011
  Receipt Date: 20040902
  Transmission Date: 20050328
  Serious: Yes (Hospitalization)
  Sender: FDA-Public Use
  Company Number: JP-GLAXOSMITHKLINE-B0344586A

PATIENT
  Age: 72 Year
  Sex: Male

DRUGS (6)
  1. PAXIL [Suspect]
     Indication: DEPRESSION
     Dosage: 20MG PER DAY
     Route: 048
     Dates: start: 20040702, end: 20040727
  2. ALPRAZOLAM [Suspect]
     Indication: DEPRESSION
     Dosage: .4MG PER DAY
     Route: 048
     Dates: start: 20040618, end: 20040726
  3. SIFROL [Suspect]
     Indication: PARKINSON'S DISEASE
     Dosage: .5MG TWICE PER DAY
     Route: 048
     Dates: start: 20040604, end: 20040727
  4. LOCHOL [Suspect]
     Dosage: 30MG PER DAY
     Route: 048
     Dates: start: 20040702, end: 20040727
  5. NEODOPASOL [Concomitant]
     Indication: PARKINSON'S DISEASE
     Route: 048
  6. CABERGOLINE [Concomitant]
     Indication: PARKINSON'S DISEASE
     Route: 048

REACTIONS (8)
  - ALANINE AMINOTRANSFERASE INCREASED [None]
  - ASPARTATE AMINOTRANSFERASE INCREASED [None]
  - CONDITION AGGRAVATED [None]
  - DECREASED APPETITE [None]
  - GAMMA-GLUTAMYLTRANSFERASE INCREASED [None]
  - HALLUCINATION, VISUAL [None]
  - LIVER DISORDER [None]
  - MOTOR DYSFUNCTION [None]
